FAERS Safety Report 24940349 (Version 2)
Quarter: 2025Q1

REPORT INFORMATION
  Report Type: Spontaneous
  Country: FR (occurrence: None)
  Receive Date: 20250207
  Receipt Date: 20250226
  Transmission Date: 20250409
  Serious: Yes (Hospitalization)
  Sender: ORION
  Company Number: FR-Orion Corporation ORION PHARMA-TREX2025-0026

PATIENT
  Age: 90 Year
  Sex: Female

DRUGS (11)
  1. METHOTREXATE [Suspect]
     Active Substance: METHOTREXATE
     Indication: Psoriasis
     Dosage: STRENGTH: 5 MG
  2. COLCHICINE [Suspect]
     Active Substance: COLCHICINE
     Indication: Product used for unknown indication
  3. BISOPROLOL [Concomitant]
     Active Substance: BISOPROLOL
  4. APIXABAN [Concomitant]
     Active Substance: APIXABAN
  5. PERINDOPRIL [Concomitant]
     Active Substance: PERINDOPRIL
  6. FUROSEMIDE [Concomitant]
     Active Substance: FUROSEMIDE
  7. NITROGLYCERIN [Concomitant]
     Active Substance: NITROGLYCERIN
     Dosage: STRENGTH: 5 MG
  8. EMPAGLIFLOZIN [Concomitant]
     Active Substance: EMPAGLIFLOZIN
  9. CHOLECALCIFEROL [Concomitant]
     Active Substance: CHOLECALCIFEROL
  10. VITAMIN B12 [Concomitant]
     Active Substance: CYANOCOBALAMIN
     Dosage: STRENGTH: 1000 UG
  11. FOLIC ACID [Concomitant]
     Active Substance: FOLIC ACID

REACTIONS (3)
  - Malaise [Unknown]
  - Mouth ulceration [Unknown]
  - Pancytopenia [Unknown]
